FAERS Safety Report 21394359 (Version 1)
Quarter: 2022Q3

REPORT INFORMATION
  Report Type: Spontaneous
  Country: US (occurrence: US)
  Receive Date: 20220930
  Receipt Date: 20220930
  Transmission Date: 20221027
  Serious: No
  Sender: FDA-Public Use
  Company Number: US-GLAXOSMITHKLINE-US2022135713

PATIENT
  Sex: Female

DRUGS (1)
  1. ZEJULA [Suspect]
     Active Substance: NIRAPARIB
     Indication: Ovarian cancer
     Dosage: 300 MG, QD
     Dates: start: 20220819

REACTIONS (13)
  - Tumour marker increased [Unknown]
  - Nausea [Unknown]
  - Fatigue [Unknown]
  - Parosmia [Unknown]
  - Muscle spasms [Unknown]
  - Urinary tract infection [Unknown]
  - Blood glucose increased [Unknown]
  - Ear pain [Unknown]
  - Dysphagia [Unknown]
  - Bacterial infection [Unknown]
  - Feeling abnormal [Unknown]
  - Decreased appetite [Unknown]
  - Product dose omission issue [Unknown]
